FAERS Safety Report 9409658 (Version 4)
Quarter: 2013Q4

REPORT INFORMATION
  Report Type: Spontaneous
  Country: JP (occurrence: JP)
  Receive Date: 20130719
  Receipt Date: 20131217
  Transmission Date: 20140711
  Serious: Yes (Life-Threatening, Hospitalization, Other)
  Sender: FDA-Public Use
  Company Number: JP-PFIZER INC-2013209127

PATIENT
  Age: 64 Year
  Sex: Male

DRUGS (2)
  1. SUTENT [Suspect]
     Indication: METASTATIC RENAL CELL CARCINOMA
     Dosage: 50 MG DAILY
     Route: 048
     Dates: start: 20130702, end: 20130717
  2. MENESIT [Concomitant]
     Indication: PARKINSON^S DISEASE
     Route: 048

REACTIONS (2)
  - Platelet count decreased [Recovered/Resolved]
  - Parkinson^s disease [Not Recovered/Not Resolved]
